FAERS Safety Report 4517237-3 (Version None)
Quarter: 2004Q4

REPORT INFORMATION
  Report Type: 
  Country: None (occurrence: None)
  Receive Date: 20041202
  Receipt Date: 20041122
  Transmission Date: 20050328
  Serious: Yes (Hospitalization)
  Sender: FDA-Public Use
  Company Number: ES-MERCK-0411ESP00031

PATIENT
  Age: 70 Year
  Sex: Male

DRUGS (10)
  1. VIOXX [Suspect]
     Indication: BONE PAIN
     Route: 048
     Dates: start: 20040129, end: 20040930
  2. INSULIN [Concomitant]
     Indication: DIABETES MELLITUS
     Route: 058
  3. ATORVASTATIN CALCIUM [Concomitant]
     Indication: BLOOD CHOLESTEROL INCREASED
     Route: 048
  4. RAMIPRIL [Concomitant]
     Route: 065
  5. MIDAZOLAM [Concomitant]
     Indication: INSOMNIA
     Route: 048
  6. ASPIRIN [Concomitant]
     Route: 048
  7. CLOPIDOGREL BISULFATE [Concomitant]
     Route: 048
  8. NITROGLYCERIN [Concomitant]
     Route: 065
  9. OMEPRAZOLE [Concomitant]
     Route: 048
  10. IBUPROFEN [Concomitant]
     Route: 048

REACTIONS (4)
  - ANGINA PECTORIS [None]
  - CARDIAC DISORDER [None]
  - CHEST PAIN [None]
  - STENT OCCLUSION [None]
